FAERS Safety Report 4712495-4 (Version None)
Quarter: 2005Q3

REPORT INFORMATION
  Report Type: 
  Country: None (occurrence: None)
  Receive Date: 20050711
  Receipt Date: 20050328
  Transmission Date: 20060218
  Serious: Yes (Hospitalization)
  Sender: FDA-Public Use
  Company Number: 2005000687

PATIENT
  Age: 74 Year
  Sex: Male
  Weight: 68.0396 kg

DRUGS (4)
  1. TARCEVA [Suspect]
     Indication: NON-SMALL CELL LUNG CANCER
     Dosage: 150 MG (QD), ORAL
     Route: 048
     Dates: start: 20050210
  2. COUMADIN [Concomitant]
  3. MILK OF MAGNESIA TAB [Concomitant]
  4. IRON (IRON) [Concomitant]

REACTIONS (19)
  - ADRENAL DISORDER [None]
  - CATHETER RELATED COMPLICATION [None]
  - DRUG INEFFECTIVE [None]
  - INTERNATIONAL NORMALISED RATIO ABNORMAL [None]
  - NAIL DISCOLOURATION [None]
  - NAIL DISORDER [None]
  - ONYCHALGIA [None]
  - ONYCHORRHEXIS [None]
  - PAIN IN EXTREMITY [None]
  - POST PROCEDURAL COMPLICATION [None]
  - PROSTATITIS [None]
  - RASH [None]
  - RASH PUSTULAR [None]
  - SKIN ATROPHY [None]
  - SKIN CHAPPED [None]
  - SKIN FISSURES [None]
  - SKIN SWELLING [None]
  - THROMBOSIS [None]
  - URINARY RETENTION [None]
